FAERS Safety Report 7595640-5 (Version None)
Quarter: 2011Q3

REPORT INFORMATION
  Report Type: 
  Country: None (occurrence: None)
  Receive Date: 20110707
  Receipt Date: 20110628
  Transmission Date: 20111222
  Serious: Yes (Other)
  Sender: FDA-Public Use
  Company Number: PHHY2011GB56915

PATIENT
  Age: 6 Week
  Sex: Female
  Weight: 3.5 kg

DRUGS (5)
  1. FLUCONAZOLE [Concomitant]
     Route: 042
  2. VANCOMYCIN [Suspect]
     Indication: STAPHYLOCOCCAL SEPSIS
     Dosage: 35 MG, UNK
     Route: 042
     Dates: start: 20110603, end: 20110610
  3. OCTREOTIDE ACETATE [Concomitant]
     Route: 042
  4. RANITIDINE [Concomitant]
     Route: 042
  5. MEROPENEM [Concomitant]
     Route: 042

REACTIONS (3)
  - PYREXIA [None]
  - FLUSHING [None]
  - TACHYCARDIA [None]
